FAERS Safety Report 4503716-1 (Version None)
Quarter: 2004Q4

REPORT INFORMATION
  Report Type: 
  Country: None (occurrence: None)
  Receive Date: 20041115
  Receipt Date: 20041108
  Transmission Date: 20050328
  Serious: Yes (Other)
  Sender: FDA-Public Use
  Company Number: DEWYE183308NOV04

PATIENT
  Age: 39 Year
  Sex: Female

DRUGS (11)
  1. VENLAFAXINE HCL [Suspect]
     Dosage: SEE IMAGE, ORAL
     Route: 048
     Dates: start: 20030603, end: 20030610
  2. VENLAFAXINE HCL [Suspect]
     Dosage: SEE IMAGE, ORAL
     Route: 048
     Dates: start: 20030611, end: 20030617
  3. VENLAFAXINE HCL [Suspect]
     Dosage: SEE IMAGE, ORAL
     Route: 048
     Dates: start: 20030618, end: 20030626
  4. VENLAFAXINE HCL [Suspect]
     Dosage: SEE IMAGE, ORAL
     Route: 048
     Dates: start: 20030627, end: 20030711
  5. VENLAFAXINE HCL [Suspect]
     Dosage: SEE IMAGE, ORAL
     Route: 048
     Dates: start: 20030712, end: 20030716
  6. VENLAFAXINE HCL [Suspect]
     Dosage: SEE IMAGE, ORAL
     Route: 048
     Dates: start: 20030717, end: 20030724
  7. VENLAFAXINE HCL [Suspect]
     Dosage: SEE IMAGE, ORAL
     Route: 048
     Dates: start: 20030725
  8. ZYBAN [Suspect]
     Dosage: SEE IMAGE, ORAL
     Route: 048
     Dates: start: 20030710, end: 20030724
  9. ZYBAN [Suspect]
     Dosage: SEE IMAGE, ORAL
     Route: 048
     Dates: start: 20030725
  10. ZOPICLONE (ZOPICLONE) [Concomitant]
  11. TIBOLONE (TIBOLONE) [Concomitant]

REACTIONS (5)
  - ANTIDEPRESSANT DRUG LEVEL INCREASED [None]
  - DRUG INTERACTION [None]
  - SUPRAVENTRICULAR EXTRASYSTOLES [None]
  - TACHYCARDIA [None]
  - VENTRICULAR EXTRASYSTOLES [None]
